FAERS Safety Report 7580571-7 (Version None)
Quarter: 2011Q2

REPORT INFORMATION
  Report Type: 
  Country: None (occurrence: None)
  Receive Date: 20110629
  Receipt Date: 20110607
  Transmission Date: 20111010
  Serious: Yes (Congenital Anomaly)
  Sender: FDA-Public Use
  Company Number: A0933329A

PATIENT
  Sex: Male

DRUGS (1)
  1. PAXIL [Suspect]
     Indication: DEPRESSION
     Dosage: 40MG PER DAY
     Route: 064

REACTIONS (3)
  - PATENT DUCTUS ARTERIOSUS [None]
  - TRANSPOSITION OF THE GREAT VESSELS [None]
  - DRUG EXPOSURE DURING PREGNANCY [None]
